FAERS Safety Report 6465497-4 (Version None)
Quarter: 2009Q4

REPORT INFORMATION
  Report Type: 
  Country: None (occurrence: None)
  Receive Date: 20091201
  Receipt Date: 20091119
  Transmission Date: 20100525
  Serious: Yes (Life-Threatening, Hospitalization)
  Sender: FDA-Public Use
  Company Number: NL-GENENTECH-292660

PATIENT
  Sex: Male

DRUGS (12)
  1. RITUXIMAB [Suspect]
     Indication: MALIGNANT LYMPHOID NEOPLASM
     Dosage: 750 MG, UNK
     Route: 042
     Dates: start: 20091007, end: 20091007
  2. RITUXIMAB [Suspect]
     Dosage: UNK
     Route: 042
     Dates: start: 20091103
  3. DEXAMETHASONE TAB [Suspect]
     Indication: MALIGNANT LYMPHOID NEOPLASM
     Dosage: 40 MG, UNK
     Route: 042
     Dates: start: 20091008
  4. DEXAMETHASONE TAB [Suspect]
     Dosage: UNK
     Route: 042
     Dates: start: 20091104
  5. CISPLATIN [Suspect]
     Indication: MALIGNANT LYMPHOID NEOPLASM
     Dosage: 200 MG, UNK
     Route: 042
     Dates: start: 20091008
  6. CISPLATIN [Suspect]
     Dosage: UNK
     Route: 042
     Dates: start: 20091104
  7. CYTARABINE [Suspect]
     Indication: MALIGNANT LYMPHOID NEOPLASM
     Dosage: 4000 MG, BID
     Route: 042
     Dates: start: 20091008
  8. CYTARABINE [Suspect]
     Dosage: 4 G, X2
     Dates: start: 20091105
  9. PREDNISONE TAB [Concomitant]
     Indication: DRUG USE FOR UNKNOWN INDICATION
     Dosage: UNK
     Dates: start: 20091007, end: 20091007
  10. PARACETAMOL [Concomitant]
     Indication: DRUG USE FOR UNKNOWN INDICATION
     Dosage: UNK
     Dates: start: 20091007, end: 20091007
  11. CLEMASTINE FUMARATE [Concomitant]
     Indication: PROPHYLAXIS
     Dosage: UNK
     Route: 042
     Dates: start: 20091007, end: 20091007
  12. FLUCONAZOLE [Suspect]
     Indication: DRUG USE FOR UNKNOWN INDICATION
     Dosage: UNK
     Route: 048
     Dates: start: 20091022, end: 20091114

REACTIONS (2)
  - FEBRILE NEUTROPENIA [None]
  - HYPOTENSION [None]
